FAERS Safety Report 5302595-2 (Version None)
Quarter: 2007Q2

REPORT INFORMATION
  Report Type: 
  Country: None (occurrence: None)
  Receive Date: 20070419
  Receipt Date: 20070416
  Transmission Date: 20071010
  Serious: Yes (Hospitalization)
  Sender: FDA-Public Use
  Company Number: DE-BOEHRINGER INGELHEIM PHARMACEUTICALS, INC.-2007-DE-02161DE

PATIENT
  Sex: Female
  Weight: 78 kg

DRUGS (5)
  1. SIFROL [Suspect]
     Indication: RESTLESS LEGS SYNDROME
     Route: 048
  2. PASPERTIN [Concomitant]
     Route: 048
     Dates: start: 20060101
  3. BISOPRODOL FUMARATE [Concomitant]
     Route: 048
     Dates: start: 20060101
  4. SIMVASTATIN [Concomitant]
     Route: 048
     Dates: start: 20060101
  5. TRAMADOL HCL [Concomitant]
     Route: 048

REACTIONS (2)
  - MENTAL DISORDER [None]
  - NAUSEA [None]
